FAERS Safety Report 16050746 (Version 1)
Quarter: 2019Q1

REPORT INFORMATION
  Report Type: Spontaneous
  Country: US (occurrence: US)
  Receive Date: 20190308
  Receipt Date: 20190308
  Transmission Date: 20190418
  Serious: No
  Sender: FDA-Public Use
  Company Number: US-GLAXOSMITHKLINE-US2019035923

PATIENT
  Age: 88 Year
  Sex: Male

DRUGS (1)
  1. FLONASE ALLERGY RELIEF [Suspect]
     Active Substance: FLUTICASONE PROPIONATE
     Indication: HYPERSENSITIVITY
     Dosage: 2 UNK, BID, TWO SPRAYS AT EACH NOSTRIL
     Dates: start: 20190223

REACTIONS (8)
  - Off label use [Unknown]
  - Oropharyngeal pain [Unknown]
  - Drug intolerance [Unknown]
  - Inappropriate schedule of product administration [Unknown]
  - Rhinorrhoea [Unknown]
  - Condition aggravated [Unknown]
  - Extra dose administered [Unknown]
  - Throat irritation [Unknown]

NARRATIVE: CASE EVENT DATE: 20190225
